FAERS Safety Report 13518325 (Version 2)
Quarter: 2017Q2

REPORT INFORMATION
  Report Type: Spontaneous
  Country: US (occurrence: US)
  Receive Date: 20170505
  Receipt Date: 20170619
  Transmission Date: 20170830
  Serious: No
  Sender: FDA-Public Use
  Company Number: US-SHIRE-US201710143

PATIENT
  Age: 87 Year
  Sex: Female
  Weight: 65.76 kg

DRUGS (1)
  1. XIIDRA [Suspect]
     Active Substance: LIFITEGRAST
     Indication: SJOGREN^S SYNDROME
     Dosage: 1 GTT (EACH EYE), 2X/DAY:BID
     Route: 047
     Dates: start: 201704

REACTIONS (5)
  - Instillation site pain [Recovered/Resolved]
  - Off label use [Not Recovered/Not Resolved]
  - Product quality issue [Unknown]
  - Adverse event [Unknown]
  - Instillation site reaction [Recovered/Resolved]

NARRATIVE: CASE EVENT DATE: 201704
